FAERS Safety Report 5194723-7 (Version None)
Quarter: 2006Q4

REPORT INFORMATION
  Report Type: 
  Country: None (occurrence: None)
  Receive Date: 20061226
  Receipt Date: 20061226
  Transmission Date: 20070319
  Serious: Yes (Hospitalization)
  Sender: FDA-Public Use
  Company Number: None

PATIENT
  Sex: Female
  Weight: 88.45 kg

DRUGS (2)
  1. FLUOROURACIL [Suspect]
     Dosage: 4400 MG
  2. LEUCOVORIN CALCIUM [Suspect]
     Dosage: 200 MG

REACTIONS (14)
  - ATELECTASIS [None]
  - BACTERIAL SEPSIS [None]
  - BLOOD GLUCOSE INCREASED [None]
  - HYPOTENSION [None]
  - KLEBSIELLA INFECTION [None]
  - LACTIC ACIDOSIS [None]
  - METABOLIC ACIDOSIS [None]
  - NEUTROPENIA [None]
  - PERITONITIS [None]
  - RENAL FAILURE [None]
  - SHORT-BOWEL SYNDROME [None]
  - SMALL INTESTINAL PERFORATION [None]
  - SUPRAVENTRICULAR TACHYCARDIA [None]
  - WEIGHT DECREASED [None]
